FAERS Safety Report 8123181-5 (Version None)
Quarter: 2012Q1

REPORT INFORMATION
  Report Type: 
  Country: None (occurrence: None)
  Receive Date: 20120208
  Receipt Date: 20120125
  Transmission Date: 20120608
  Serious: Yes (Hospitalization)
  Sender: FDA-Public Use
  Company Number: IE-MEDIMMUNE-MEDI-0014774

PATIENT
  Sex: Male
  Weight: 6.1 kg

DRUGS (5)
  1. SYNAGIS [Suspect]
     Route: 030
     Dates: start: 20111101, end: 20111101
  2. KAPSOVIT [Concomitant]
  3. FERROUS SULFATE TAB [Concomitant]
  4. OMEPRAZOLE SODIUM [Concomitant]
  5. ERGOCALCIFEROL [Concomitant]

REACTIONS (2)
  - BRONCHIOLITIS [None]
  - WHEEZING [None]
